FAERS Safety Report 7461755-5 (Version None)
Quarter: 2011Q2

REPORT INFORMATION
  Report Type: 
  Country: None (occurrence: None)
  Receive Date: 20110506
  Receipt Date: 20110426
  Transmission Date: 20111010
  Serious: Yes (Congenital Anomaly)
  Sender: FDA-Public Use
  Company Number: GB-RANBAXY-2011R1-44030

PATIENT

DRUGS (4)
  1. TOPIRAMATE [Suspect]
     Indication: DRUG EXPOSURE DURING PREGNANCY
     Dosage: 400 MG, UNK
     Route: 064
  2. CO-DYDRAMOL [Concomitant]
     Indication: DRUG EXPOSURE DURING PREGNANCY
     Dosage: UNK,UNK
     Route: 064
  3. FOLIC ACID [Concomitant]
     Indication: DRUG EXPOSURE DURING PREGNANCY
     Dosage: 5 MG, UNK
     Route: 064
  4. VALPROIC ACID [Suspect]
     Indication: DRUG EXPOSURE DURING PREGNANCY
     Dosage: 1000 MG, SINGLE
     Route: 064

REACTIONS (2)
  - FOETAL ANTICONVULSANT SYNDROME [None]
  - CLEFT PALATE [None]
